FAERS Safety Report 4546942-8 (Version None)
Quarter: 2005Q1

REPORT INFORMATION
  Report Type: 
  Country: None (occurrence: None)
  Receive Date: 20050105
  Receipt Date: 20041221
  Transmission Date: 20050727
  Serious: Yes (Death)
  Sender: FDA-Public Use
  Company Number: 2004AL000609

PATIENT
  Age: 54 Year
  Sex: Female

DRUGS (8)
  1. DIAZEPAM [Suspect]
     Dosage: PO
     Route: 048
  2. TRAMADOL HCL [Concomitant]
     Dosage: PO
     Route: 048
  3. ACETAMINOPHEN [Suspect]
     Dosage: PO
     Route: 048
  4. ACETAMINOPHEN [Suspect]
     Dosage: PO
     Route: 048
  5. SERTRALINE HCL [Suspect]
     Dosage: PO
     Route: 048
  6. DIPHENHYDRAMINE HCL [Suspect]
     Dosage: PO
     Route: 048
  7. VALSARTAN [Suspect]
     Dosage: PO
     Route: 048
  8. ASPIRIN [Suspect]
     Dosage: PO
     Route: 048

REACTIONS (9)
  - COMA [None]
  - COMPLETED SUICIDE [None]
  - DEPRESSED LEVEL OF CONSCIOUSNESS [None]
  - HEPATIC FAILURE [None]
  - LOWER GASTROINTESTINAL HAEMORRHAGE [None]
  - MULTIPLE DRUG OVERDOSE [None]
  - PROTHROMBIN TIME PROLONGED [None]
  - RENAL FAILURE [None]
  - RESPIRATORY DEPRESSION [None]
